FAERS Safety Report 10908984 (Version 1)
Quarter: 2015Q1

REPORT INFORMATION
  Report Type: Spontaneous
  Country: US (occurrence: US)
  Receive Date: 20150312
  Receipt Date: 20150312
  Transmission Date: 20150721
  Serious: No
  Sender: FDA-Public Use
  Company Number: US-SA-2014SA031577

PATIENT
  Age: 76 Year
  Sex: Female

DRUGS (2)
  1. NASACORT ALLERGY 24HR [Suspect]
     Active Substance: TRIAMCINOLONE ACETONIDE
     Indication: HYPERSENSITIVITY
     Route: 065
     Dates: start: 2014
  2. ZYRTEK [Concomitant]

REACTIONS (3)
  - Upper-airway cough syndrome [Unknown]
  - Rhinorrhoea [Unknown]
  - Nausea [Unknown]
